FAERS Safety Report 17398513 (Version 5)
Quarter: 2020Q2

REPORT INFORMATION
  Report Type: Spontaneous
  Country: DE (occurrence: DE)
  Receive Date: 20200210
  Receipt Date: 20200528
  Transmission Date: 20200713
  Serious: Yes (Death, Life-Threatening, Other)
  Sender: FDA-Public Use
  Company Number: NVSC2020DE032938

PATIENT
  Age: 15 Year
  Sex: Female

DRUGS (14)
  1. CYCLOPHOSPHAMIDE. [Suspect]
     Active Substance: CYCLOPHOSPHAMIDE
     Indication: ALVEOLAR RHABDOMYOSARCOMA
  2. ETOPOSIDE. [Suspect]
     Active Substance: ETOPOSIDE
     Indication: ALVEOLAR RHABDOMYOSARCOMA
     Dosage: 75 UNK
     Route: 065
  3. VINCRISTINE [Suspect]
     Active Substance: VINCRISTINE
     Indication: ALVEOLAR RHABDOMYOSARCOMA
     Dosage: UNK
     Route: 065
  4. ETOPOSIDE. [Suspect]
     Active Substance: ETOPOSIDE
     Indication: ABDOMINAL NEOPLASM
     Dosage: 1560 MG/M2, ADMINISTERED ON DAYS 1 AND 3 AT 50% OF THE ORIGINAL DOSE OF THE ICE REGIMEN
     Route: 065
     Dates: start: 201101
  5. CARBOPLATIN. [Suspect]
     Active Substance: CARBOPLATIN
     Indication: ALVEOLAR RHABDOMYOSARCOMA
     Dosage: 50 UNK
     Route: 065
  6. IFOSFAMIDE. [Suspect]
     Active Substance: IFOSFAMIDE
     Indication: ABDOMINAL NEOPLASM
     Dosage: 1.5 G/M2, ADMINISTERED ON DAYS 1 AND 3 AT 50% OF THE ORIGINAL DOSE OF THE ICE REGIMEN
     Route: 065
     Dates: start: 201101
  7. CYCLOPHOSPHAMIDE. [Suspect]
     Active Substance: CYCLOPHOSPHAMIDE
     Indication: ABDOMINAL NEOPLASM
     Dosage: UNKNOWN
     Route: 065
  8. IFOSFAMIDE. [Suspect]
     Active Substance: IFOSFAMIDE
     Indication: ALVEOLAR RHABDOMYOSARCOMA
     Dosage: 0.75 G/M2
     Route: 065
  9. ADRIAMYCIN [Suspect]
     Active Substance: DOXORUBICIN HYDROCHLORIDE
     Indication: ALVEOLAR RHABDOMYOSARCOMA
     Dosage: UNK
     Route: 065
  10. ACTINOMYCIN D [Suspect]
     Active Substance: DACTINOMYCIN
     Indication: ALVEOLAR RHABDOMYOSARCOMA
     Dosage: UNK
     Route: 065
  11. THIOTEPA. [Suspect]
     Active Substance: THIOTEPA
     Indication: ALVEOLAR RHABDOMYOSARCOMA
     Dosage: UNKNOWN
     Route: 065
  12. ETOPOSIDE. [Suspect]
     Active Substance: ETOPOSIDE
     Dosage: UNKNOWN
     Route: 065
  13. CARBOPLATIN. [Suspect]
     Active Substance: CARBOPLATIN
     Indication: ABDOMINAL NEOPLASM
     Dosage: 100 MG/M2, ADMINISTERED ON DAYS 1 AND 3 AT 50% OF THE ORIGINAL DOSE OF THE ICE REGIMEN
     Route: 065
     Dates: start: 201101
  14. MELPHALAN. [Suspect]
     Active Substance: MELPHALAN
     Indication: PRODUCT USED FOR UNKNOWN INDICATION
     Dosage: UNKNOWN
     Route: 065

REACTIONS (12)
  - Ocular icterus [Fatal]
  - Product use in unapproved indication [Fatal]
  - Abdominal neoplasm [Fatal]
  - Sepsis [Fatal]
  - Malignant neoplasm progression [Fatal]
  - Ascites [Fatal]
  - Refractory cancer [Fatal]
  - Erythema [Fatal]
  - Acute graft versus host disease [Fatal]
  - Rhabdomyosarcoma recurrent [Fatal]
  - Cholestasis [Fatal]
  - Skin reaction [Unknown]

NARRATIVE: CASE EVENT DATE: 201011
